FAERS Safety Report 5341967-7 (Version None)
Quarter: 2007Q2

REPORT INFORMATION
  Report Type: 
  Country: None (occurrence: None)
  Receive Date: 20070330
  Receipt Date: 20060804
  Transmission Date: 20071010
  Serious: Yes (Other)
  Sender: FDA-Public Use
  Company Number: 06-033

PATIENT
  Age: 53 Year
  Sex: Female
  Weight: 56.6996 kg

DRUGS (8)
  1. PREDNISONE [Suspect]
     Indication: PULMONARY FIBROSIS
     Dosage: 1 PER DAY
     Dates: start: 20060705
  2. ADVAIR DISKUS 100/50 [Concomitant]
  3. THEOPHYLLINE [Concomitant]
  4. ALBUTEROL [Concomitant]
  5. METOPROLOL SUCCINATE [Concomitant]
  6. GABAPENTIN [Concomitant]
  7. XANAX [Concomitant]
  8. EFFEXOR [Concomitant]

REACTIONS (4)
  - HYPERSENSITIVITY [None]
  - INSOMNIA [None]
  - MUSCLE SPASMS [None]
  - TREMOR [None]
